FAERS Safety Report 24673091 (Version 1)
Quarter: 2024Q4

REPORT INFORMATION
  Report Type: Spontaneous
  Country: CA (occurrence: CA)
  Receive Date: 20241128
  Receipt Date: 20241128
  Transmission Date: 20250114
  Serious: Yes (Hospitalization, Other)
  Sender: SANDOZ
  Company Number: CA-SANDOZ-SDZ2024CA098280

PATIENT
  Age: 4 Month
  Sex: Female

DRUGS (2)
  1. ANGIOMAX [Suspect]
     Active Substance: BIVALIRUDIN
     Indication: Product used for unknown indication
     Dosage: 1.85 MG/KG
     Route: 042
  2. ASPIRIN [Concomitant]
     Active Substance: ASPIRIN
     Indication: Product used for unknown indication
     Dosage: UNK
     Route: 065

REACTIONS (2)
  - Fibrin increased [Unknown]
  - Drug ineffective [Unknown]
